FAERS Safety Report 9487095 (Version 2)
Quarter: 2014Q1

REPORT INFORMATION
  Report Type: Spontaneous
  Country: CA (occurrence: None)
  Receive Date: 20130823
  Receipt Date: 20140207
  Transmission Date: 20141002
  Serious: Yes (Other)
  Sender: FDA-Public Use
  Company Number: SYM-2013-08986

PATIENT
  Age: 67 Year
  Sex: Male

DRUGS (2)
  1. MESTINON [Suspect]
     Indication: PRODUCT USED FOR UNKNOWN INDICATION
  2. OXYBUTYNIN [Suspect]
     Indication: BLADDER DISORDER
     Dates: start: 2013, end: 201307

REACTIONS (3)
  - Drug interaction [None]
  - Myasthenia gravis [None]
  - Malaise [None]
